FAERS Safety Report 9913086 (Version 1)
Quarter: 2014Q1

REPORT INFORMATION
  Report Type: Spontaneous
  Country: US (occurrence: None)
  Receive Date: 20140218
  Receipt Date: 20140218
  Transmission Date: 20141002
  Serious: Yes (Other)
  Sender: FDA-Public Use
  Company Number: None

PATIENT
  Age: 80 Year
  Sex: Female
  Weight: 102.51 kg

DRUGS (8)
  1. HYDROXYUREA [Suspect]
     Indication: THROMBOCYTOSIS
     Dosage: ONE TABLET BID PO
     Route: 048
  2. LISINOPRIL [Concomitant]
  3. HYDROXYUREA [Concomitant]
  4. FUROSEMIDE [Concomitant]
  5. METFORMIN [Concomitant]
  6. ONGLYZA [Concomitant]
  7. METOPROLOL [Concomitant]
  8. GLYBURIDE [Concomitant]

REACTIONS (2)
  - Wound [None]
  - Wound secretion [None]
